FAERS Safety Report 20814781 (Version 1)
Quarter: 2022Q2

REPORT INFORMATION
  Report Type: Spontaneous
  Country: US (occurrence: None)
  Receive Date: 20220511
  Receipt Date: 20220511
  Transmission Date: 20220721
  Serious: No
  Sender: FDA-Public Use
  Company Number: 2022A155623

PATIENT
  Age: 76 Year
  Sex: Male
  Weight: 89 kg

DRUGS (13)
  1. DAPAGLIFLOZIN [Suspect]
     Active Substance: DAPAGLIFLOZIN
     Dosage: TAKE ONE DAILY, TO HELP HEART/BLOOD SUGAR LEVELS
     Route: 048
     Dates: start: 20210906, end: 20220411
  2. DAPAGLIFLOZIN [Suspect]
     Active Substance: DAPAGLIFLOZIN
     Dosage: DOSE UNKNOWN
     Route: 048
     Dates: start: 20220411
  3. ALLOPURINOL [Concomitant]
     Active Substance: ALLOPURINOL
     Dosage: TAKE ONE DAILY
     Dates: start: 20201230
  4. AMOXICILLIN [Concomitant]
     Active Substance: AMOXICILLIN
     Dosage: TAKE ONE 3 TIMES/DAY
     Dates: start: 20220314, end: 20220321
  5. ATORVASTATIN [Concomitant]
     Active Substance: ATORVASTATIN
     Dosage: TAKE ONE DAILY
     Dates: start: 20210928
  6. CARVEDILOL [Concomitant]
     Active Substance: CARVEDILOL
     Dosage: TAKE ONE TWICTAKE ONE TWICE DAILY AS DIRECTED BY THE SPECIALISTE DAILY AS DIRECTED BY THE SPECIALIST
     Dates: start: 20211025
  7. WHITE SOFT PARAFFIN/GLYCINE MAX/LIGHT LIQUID PARAFFIN [Concomitant]
     Dosage: AS REQUIRED FOR DRY SKIN
     Dates: start: 20210416
  8. FUROSEMIDE [Concomitant]
     Active Substance: FUROSEMIDE
     Dosage: TAKE ONE EACH MORNING AS DIRECTED BY THE SPECIA...
     Dates: start: 20211025
  9. HYALURONATE SODIUM [Concomitant]
     Active Substance: HYALURONATE SODIUM
     Dosage: USE AS DIRECTED
     Dates: start: 20201230
  10. PREDNISOLONE [Concomitant]
     Active Substance: PREDNISOLONE
     Dosage: 6 DAILY FOR 7 DAYS
     Dates: start: 20220314, end: 20220321
  11. SACUBITRIL [Concomitant]
     Active Substance: SACUBITRIL
     Dosage: TAKE ONE TWICE DAILY AS DIRECTED BY THE SPECIALIST
     Dates: start: 20211025
  12. VILDAGLIPTIN [Concomitant]
     Active Substance: VILDAGLIPTIN
     Dosage: TAKE ONE TWICE DAILY
     Dates: start: 20201230
  13. WARFARIN SODIUM [Concomitant]
     Active Substance: WARFARIN SODIUM
     Dosage: TAKE AS RECOMMENDED IN YOUR HOSPITAL ANTICOAGUL...
     Dates: start: 20201230

REACTIONS (1)
  - Dry mouth [Recovered/Resolved]

NARRATIVE: CASE EVENT DATE: 20220411
